FAERS Safety Report 15952975 (Version 2)
Quarter: 2019Q1

REPORT INFORMATION
  Report Type: Spontaneous
  Country: US (occurrence: US)
  Receive Date: 20190211
  Receipt Date: 20190228
  Transmission Date: 20190417
  Serious: Yes (Other)
  Sender: FDA-Public Use
  Company Number: US-ASTRAZENECA-2018SF33713

PATIENT

DRUGS (23)
  1. CHLORHEXIDINE [Concomitant]
     Active Substance: CHLORHEXIDINE
  2. TEMAZEPAM. [Concomitant]
     Active Substance: TEMAZEPAM
  3. FUROSEMIDE. [Concomitant]
     Active Substance: FUROSEMIDE
  4. ASPIRIN. [Concomitant]
     Active Substance: ASPIRIN
  5. LEXAPRO [Concomitant]
     Active Substance: ESCITALOPRAM OXALATE
  6. SYNTHROID [Concomitant]
     Active Substance: LEVOTHYROXINE SODIUM
  7. PAXIL [Concomitant]
     Active Substance: PAROXETINE HYDROCHLORIDE
  8. DIVALPROEX [Concomitant]
     Active Substance: DIVALPROEX SODIUM
  9. ALPRAZOLAM. [Concomitant]
     Active Substance: ALPRAZOLAM
  10. SERTRALINE [Concomitant]
     Active Substance: SERTRALINE HYDROCHLORIDE
  11. DIAZEPAM. [Concomitant]
     Active Substance: DIAZEPAM
  12. CLONAZEPAM. [Concomitant]
     Active Substance: CLONAZEPAM
  13. PRAVASTATIN. [Concomitant]
     Active Substance: PRAVASTATIN
  14. NEXIUM [Suspect]
     Active Substance: ESOMEPRAZOLE MAGNESIUM
     Route: 048
     Dates: start: 200807, end: 200909
  15. NEXIUM [Suspect]
     Active Substance: ESOMEPRAZOLE MAGNESIUM
     Route: 048
     Dates: start: 20080717
  16. METOPROLOL. [Concomitant]
     Active Substance: METOPROLOL
  17. AMOXICILLIN. [Concomitant]
     Active Substance: AMOXICILLIN
  18. LIDOCAINE. [Concomitant]
     Active Substance: LIDOCAINE
  19. SIMVASTATIN. [Concomitant]
     Active Substance: SIMVASTATIN
  20. GABAPENTIN. [Concomitant]
     Active Substance: GABAPENTIN
  21. IBUPROFEN. [Concomitant]
     Active Substance: IBUPROFEN
  22. DICLOFENAC [Concomitant]
     Active Substance: DICLOFENAC
  23. LEVOTHYROXINE. [Concomitant]
     Active Substance: LEVOTHYROXINE

REACTIONS (4)
  - Renal failure [Unknown]
  - Tubulointerstitial nephritis [Unknown]
  - Chronic kidney disease [Unknown]
  - Renal injury [Unknown]
